FAERS Safety Report 17518486 (Version 1)
Quarter: 2020Q1

REPORT INFORMATION
  Report Type: Report from Study
  Country: CA (occurrence: CA)
  Receive Date: 20200309
  Receipt Date: 20200309
  Transmission Date: 20200409
  Serious: Yes (Other)
  Sender: FDA-Public Use
  Company Number: CA-JNJFOC-20191040630

PATIENT
  Age: 38 Year
  Sex: Female
  Weight: 80.2 kg

DRUGS (1)
  1. SIMPONI [Suspect]
     Active Substance: GOLIMUMAB
     Indication: PSORIATIC ARTHROPATHY
     Dosage: STRENGTH = 50 MG
     Route: 058
     Dates: start: 20190207

REACTIONS (3)
  - Fungal infection [Unknown]
  - Sinus congestion [Not Recovered/Not Resolved]
  - Lip ulceration [Recovered/Resolved]

NARRATIVE: CASE EVENT DATE: 201908
